FAERS Safety Report 24612777 (Version 1)
Quarter: 2024Q4

REPORT INFORMATION
  Report Type: Spontaneous
  Country: US (occurrence: None)
  Receive Date: 20241112
  Receipt Date: 20241112
  Transmission Date: 20250115
  Serious: Yes (Hospitalization)
  Sender: Public
  Company Number: None

PATIENT
  Age: 74 Year
  Sex: Male

DRUGS (1)
  1. DILTIAZEM [Suspect]
     Active Substance: DILTIAZEM
     Indication: Atrial flutter
     Dosage: 120.00 MG DAILY ORAL
     Route: 048

REACTIONS (2)
  - Tachycardia [None]
  - Product communication issue [None]

NARRATIVE: CASE EVENT DATE: 20240916
